FAERS Safety Report 11886342 (Version 12)
Quarter: 2016Q2

REPORT INFORMATION
  Report Type: Report from Study
  Country: US (occurrence: US)
  Receive Date: 20160104
  Receipt Date: 20160607
  Transmission Date: 20160815
  Serious: Yes (Hospitalization)
  Sender: FDA-Public Use
  Company Number: US-ACTELION-A-US2015-128127

PATIENT
  Age: 49 Year
  Sex: Female

DRUGS (1)
  1. VELETRI [Suspect]
     Active Substance: EPOPROSTENOL
     Indication: PULMONARY HYPERTENSION
     Dosage: 71 NG/KG, PER MIN
     Route: 042
     Dates: start: 20151120

REACTIONS (21)
  - Aortic valve replacement [Unknown]
  - Electrolyte imbalance [Unknown]
  - Pulmonary arterial hypertension [Unknown]
  - Dyspnoea [Unknown]
  - Ocular hyperaemia [Unknown]
  - Asthenia [Unknown]
  - Lacrimation increased [Unknown]
  - Blood magnesium abnormal [Unknown]
  - Cardiac failure congestive [Unknown]
  - Fluid retention [Unknown]
  - Flushing [Unknown]
  - Headache [Unknown]
  - Nausea [Unknown]
  - Abdominal distension [Unknown]
  - Oedema peripheral [Unknown]
  - Generalised oedema [Unknown]
  - Pain in jaw [Unknown]
  - Burning sensation [Unknown]
  - Pyrexia [Unknown]
  - Right ventricular failure [Unknown]
  - Hypokalaemia [Unknown]
